FAERS Safety Report 13763950 (Version 1)
Quarter: 2017Q3

REPORT INFORMATION
  Report Type: Spontaneous
  Country: AT (occurrence: AT)
  Receive Date: 20170718
  Receipt Date: 20170718
  Transmission Date: 20171127
  Serious: Yes (Hospitalization)
  Sender: FDA-Public Use
  Company Number: AT-PFIZER INC-2017304325

PATIENT
  Age: 42 Year
  Sex: Female
  Weight: 114 kg

DRUGS (1)
  1. CARBOPLATIN PFIZER [Suspect]
     Active Substance: CARBOPLATIN
     Indication: CHEMOTHERAPY
     Dosage: 937.15 MG, UNK
     Dates: start: 20170626, end: 20170626

REACTIONS (6)
  - Head discomfort [Recovered/Resolved]
  - Pruritus generalised [Recovered/Resolved]
  - Paraesthesia [Recovered/Resolved]
  - Hypoaesthesia oral [Recovered/Resolved]
  - Feeling hot [Recovered/Resolved]
  - Flushing [Recovered/Resolved]

NARRATIVE: CASE EVENT DATE: 20170626
